FAERS Safety Report 21589211 (Version 8)
Quarter: 2023Q2

REPORT INFORMATION
  Report Type: Spontaneous
  Country: PT (occurrence: PT)
  Receive Date: 20221114
  Receipt Date: 20230621
  Transmission Date: 20230721
  Serious: Yes (Death, Life-Threatening, Hospitalization, Other)
  Sender: FDA-Public Use
  Company Number: PT-LABALTER-202203636

PATIENT

DRUGS (4)
  1. DICLOFENAC [Suspect]
     Active Substance: DICLOFENAC
     Indication: Analgesic therapy
     Dosage: UNK
     Route: 048
  2. DICLOFENAC [Suspect]
     Active Substance: DICLOFENAC
     Indication: Lumbar vertebral fracture
  3. DICLOFENAC [Suspect]
     Active Substance: DICLOFENAC
     Indication: Fall
  4. DICLOFENAC [Suspect]
     Active Substance: DICLOFENAC
     Indication: Spinal fracture

REACTIONS (3)
  - Acute hepatic failure [Fatal]
  - Hepatic failure [Fatal]
  - Drug-induced liver injury [Fatal]
